FAERS Safety Report 4413823-X (Version None)
Quarter: 2004Q3

REPORT INFORMATION
  Report Type: 
  Country: None (occurrence: None)
  Receive Date: 20040802
  Receipt Date: 20040802
  Transmission Date: 20050211
  Serious: Yes (Hospitalization)
  Sender: FDA-Public Use
  Company Number: None

PATIENT
  Age: 71 Year
  Sex: Female
  Weight: 48.9885 kg

DRUGS (6)
  1. THALIDOMIDE  100MG PO QHS [Suspect]
     Indication: LUNG SQUAMOUS CELL CARCINOMA STAGE UNSPECIFIED
     Dosage: 100 MG PO QHS
     Route: 048
     Dates: start: 20040401
  2. THALIDOMIDE  100MG PO QHS [Suspect]
     Indication: METASTASIS
     Dosage: 100 MG PO QHS
     Route: 048
     Dates: start: 20040401
  3. TEMODAR [Suspect]
     Indication: LUNG SQUAMOUS CELL CARCINOMA STAGE UNSPECIFIED
     Dosage: 100 MG PO QHS
     Route: 048
     Dates: start: 20040401
  4. TEMODAR [Suspect]
     Indication: METASTASIS
     Dosage: 100 MG PO QHS
     Route: 048
     Dates: start: 20040401
  5. XELODA [Concomitant]
  6. PROCRIT [Concomitant]

REACTIONS (1)
  - DEEP VEIN THROMBOSIS [None]
